FAERS Safety Report 7475192-0 (Version None)
Quarter: 2011Q2

REPORT INFORMATION
  Report Type: 
  Country: None (occurrence: None)
  Receive Date: 20110505
  Receipt Date: 20110418
  Transmission Date: 20111010
  Serious: Yes (Hospitalization)
  Sender: FDA-Public Use
  Company Number: UCM201104-000005

PATIENT
  Age: 40 Year
  Sex: Female

DRUGS (1)
  1. TOPIRAMATE [Suspect]
     Indication: MIGRAINE
     Dosage: 25 MG EVERY 8 HOURS

REACTIONS (9)
  - FLAT ANTERIOR CHAMBER OF EYE [None]
  - ANGLE CLOSURE GLAUCOMA [None]
  - IRIS ADHESIONS [None]
  - MYOPIA [None]
  - CATARACT [None]
  - IRIDOCYCLITIS [None]
  - HYPOPYON [None]
  - CORNEAL OEDEMA [None]
  - CHOROIDAL EFFUSION [None]
